FAERS Safety Report 8722729 (Version 2)
Quarter: 2013Q1

REPORT INFORMATION
  Report Type: Spontaneous
  Country: US (occurrence: US)
  Receive Date: 20120814
  Receipt Date: 20130219
  Transmission Date: 20140127
  Serious: No
  Sender: FDA-Public Use
  Company Number: US-009507513-1208USA002613

PATIENT
  Sex: Female

DRUGS (1)
  1. COPPPERTONE SPORT CLEAR CONTINUOUS SPRAY SUNSCREEN SPF-50 [Suspect]
     Indication: PRODUCT USED FOR UNKNOWN INDICATION
     Dosage: UNK, UNKNOWN
     Route: 061
     Dates: start: 20120610

REACTIONS (1)
  - Hair colour changes [Recovered/Resolved]
